FAERS Safety Report 23769174 (Version 1)
Quarter: 2024Q2

REPORT INFORMATION
  Report Type: Spontaneous
  Country: LV (occurrence: LV)
  Receive Date: 20240422
  Receipt Date: 20240422
  Transmission Date: 20240716
  Serious: Yes (Other)
  Sender: FDA-Public Use
  Company Number: LV-MYLANLABS-2024M1034683

PATIENT
  Age: 60 Year
  Sex: Female

DRUGS (5)
  1. FENOFIBRATE [Suspect]
     Active Substance: FENOFIBRATE
     Indication: Blood cholesterol increased
     Dosage: 200 MILLIGRAM, QD
     Route: 048
     Dates: start: 20240412, end: 20240413
  2. CLONIDINE HYDROCHLORIDE [Suspect]
     Active Substance: CLONIDINE HYDROCHLORIDE
     Indication: Blood pressure increased
     Dosage: UNK
     Route: 048
  3. NEBIVOLOL [Concomitant]
     Active Substance: NEBIVOLOL
     Indication: Blood pressure increased
     Dosage: UNK
     Route: 048
  4. MOXONIDINE [Concomitant]
     Active Substance: MOXONIDINE
     Indication: Blood pressure increased
     Dosage: UNK
     Route: 048
  5. FESTAL [Concomitant]
     Indication: Pancreatic disorder
     Dosage: UNK
     Route: 048

REACTIONS (2)
  - Angioedema [Not Recovered/Not Resolved]
  - Suspected counterfeit product [Unknown]

NARRATIVE: CASE EVENT DATE: 20240413
